FAERS Safety Report 10048434 (Version 1)
Quarter: 2014Q1

REPORT INFORMATION
  Report Type: Spontaneous
  Country: US (occurrence: US)
  Receive Date: 20140331
  Receipt Date: 20140331
  Transmission Date: 20141002
  Serious: Yes (Hospitalization)
  Sender: FDA-Public Use
  Company Number: US-INCYTE CORPORATION-2014IN000831

PATIENT
  Age: 76 Year
  Sex: Male

DRUGS (16)
  1. JAKAFI [Suspect]
     Indication: MYELOFIBROSIS
     Dosage: 20 MG, BID
     Route: 048
  2. PREDNISONE [Concomitant]
  3. AMLODIPINE [Concomitant]
  4. ALLOPURINOL [Concomitant]
  5. DOXYCYCLINE [Concomitant]
  6. FINASTERIDE [Concomitant]
  7. DAPTOMYCIN [Concomitant]
  8. OMEPRAZOLE [Concomitant]
  9. OXYCODONE [Concomitant]
  10. POTASSIUM [Concomitant]
  11. ASPIRIN [Concomitant]
     Dosage: 81 MG, UNK
  12. SIMVASTATIN [Concomitant]
  13. TAMSULOSIN [Concomitant]
  14. GABAPENTIN [Concomitant]
  15. DIAZEPAM [Concomitant]
  16. IBUPROFEN [Concomitant]

REACTIONS (1)
  - Pneumonia [Unknown]
